FAERS Safety Report 25605701 (Version 4)
Quarter: 2025Q3

REPORT INFORMATION
  Report Type: Spontaneous
  Country: US (occurrence: US)
  Receive Date: 20250725
  Receipt Date: 20250901
  Transmission Date: 20251021
  Serious: No
  Sender: SANOFI AVENTIS
  Company Number: US-SA-2025SA213724

PATIENT
  Age: 77 Year
  Sex: Female

DRUGS (1)
  1. DUPIXENT [Suspect]
     Active Substance: DUPILUMAB
     Indication: Nasal polyps
     Dosage: 300 MG, QOW
     Route: 058
     Dates: start: 202502

REACTIONS (9)
  - Cough [Unknown]
  - Oropharyngeal discomfort [Unknown]
  - Choking sensation [Recovering/Resolving]
  - Paraesthesia [Unknown]
  - Throat irritation [Unknown]
  - Lacrimation increased [Recovering/Resolving]
  - Limb discomfort [Recovering/Resolving]
  - Pain in extremity [Unknown]
  - Ocular hyperaemia [Recovering/Resolving]

NARRATIVE: CASE EVENT DATE: 20250101
